FAERS Safety Report 8877228 (Version 1)
Quarter: 2012Q4

REPORT INFORMATION
  Report Type: 
  Country: DK (occurrence: NL)
  Receive Date: 20121030
  Receipt Date: 20121030
  Transmission Date: 20130627
  Serious: Yes (Hospitalization)
  Sender: FDA-Public Use
  Company Number: NL-FRI-1000039918

PATIENT

DRUGS (2)
  1. ESCITALOPRAM [Suspect]
     Route: 064
  2. ESCITALOPRAM [Suspect]
     Route: 064

REACTIONS (2)
  - Dyspnoea [Unknown]
  - Foetal exposure during pregnancy [Unknown]
